FAERS Safety Report 21531344 (Version 1)
Quarter: 2022Q4

REPORT INFORMATION
  Report Type: Spontaneous
  Country: US (occurrence: None)
  Receive Date: 20221028
  Receipt Date: 20221028
  Transmission Date: 20230113
  Serious: Yes (Hospitalization)
  Sender: FDA-Public Use
  Company Number: None

PATIENT
  Age: 75 Year
  Sex: Male

DRUGS (1)
  1. CEFEPIME HYDROCHLORIDE [Suspect]
     Active Substance: CEFEPIME HYDROCHLORIDE
     Indication: Renal failure
     Dosage: FREQUENCY : TWICE A DAY;?
     Route: 042
     Dates: start: 20220329, end: 20220415

REACTIONS (1)
  - Renal failure [None]

NARRATIVE: CASE EVENT DATE: 20220412
